FAERS Safety Report 8295425-0 (Version None)
Quarter: 2012Q2

REPORT INFORMATION
  Report Type: 
  Country: None (occurrence: None)
  Receive Date: 20120418
  Receipt Date: 20120410
  Transmission Date: 20120825
  Serious: Yes (Hospitalization, Other)
  Sender: FDA-Public Use
  Company Number: US-ROXANE LABORATORIES, INC.-2009-RO-00049RO

PATIENT
  Age: 36 Year
  Sex: Female

DRUGS (11)
  1. VENLAFAXINE [Suspect]
     Indication: DEPRESSION
  2. TRIMETHOPRIM + SULFAMETHOXAZOLE [Concomitant]
     Indication: ANTIBIOTIC THERAPY
  3. LINEZOLID [Suspect]
     Indication: STAPHYLOCOCCAL INFECTION
  4. IMIPRAMINE PAMOATE [Suspect]
  5. SODIUM CHLORIDE [Concomitant]
     Indication: TACHYCARDIA
  6. IMIPRAMINE PAMOATE [Suspect]
     Indication: HEADACHE
  7. INTUBATED [Concomitant]
     Indication: AIRWAY PATENCY OESOPHAGEAL DEVICE
  8. LORAZEPAM [Concomitant]
     Indication: TREMOR
  9. PROPOFOL [Concomitant]
     Indication: SEDATION
     Route: 042
  10. LITHIUM CARBONATE [Suspect]
     Indication: BIPOLAR DISORDER
  11. VENLAFAXINE [Suspect]

REACTIONS (12)
  - HYPERHIDROSIS [None]
  - MYDRIASIS [None]
  - HYPERTENSION [None]
  - TACHYCARDIA [None]
  - SEROTONIN SYNDROME [None]
  - HYPERREFLEXIA [None]
  - CONVULSION [None]
  - UNRESPONSIVE TO STIMULI [None]
  - DRUG INTERACTION [None]
  - TREMOR [None]
  - DIARRHOEA [None]
  - ANXIETY [None]
